FAERS Safety Report 16630940 (Version 1)
Quarter: 2019Q3

REPORT INFORMATION
  Report Type: Report from Study
  Country: US (occurrence: US)
  Receive Date: 20190725
  Receipt Date: 20190725
  Transmission Date: 20191004
  Serious: Yes (Hospitalization, Other)
  Sender: FDA-Public Use
  Company Number: PHEH2019US030392

PATIENT
  Sex: Female

DRUGS (1)
  1. ENTRESTO [Suspect]
     Active Substance: SACUBITRIL\VALSARTAN
     Indication: PRODUCT USED FOR UNKNOWN INDICATION
     Route: 048

REACTIONS (9)
  - Dyspnoea [Unknown]
  - Insomnia [Unknown]
  - Atrial fibrillation [Unknown]
  - Stress [Unknown]
  - Fall [Unknown]
  - Hypotension [Unknown]
  - Anxiety [Unknown]
  - Limb injury [Unknown]
  - Dizziness [Unknown]
